FAERS Safety Report 7823003-3 (Version None)
Quarter: 2011Q4

REPORT INFORMATION
  Report Type: 
  Country: None (occurrence: None)
  Receive Date: 20111018
  Receipt Date: 20110127
  Transmission Date: 20120403
  Serious: No
  Sender: FDA-Public Use
  Company Number: US-ASTRAZENECA-2011SE04814

PATIENT
  Age: 15 Year
  Sex: Female

DRUGS (2)
  1. SYMBICORT [Suspect]
     Route: 055
  2. SINGULAIR [Suspect]
     Route: 065

REACTIONS (1)
  - TOOTH DISCOLOURATION [None]
